FAERS Safety Report 7409447-2 (Version None)
Quarter: 2011Q2

REPORT INFORMATION
  Report Type: 
  Country: None (occurrence: None)
  Receive Date: 20110412
  Receipt Date: 20110321
  Transmission Date: 20111010
  Serious: Yes (Hospitalization, Other)
  Sender: FDA-Public Use
  Company Number: US-BAYER-2010-002111

PATIENT
  Sex: Female
  Weight: 77.098 kg

DRUGS (3)
  1. YAZ [Suspect]
     Indication: PRODUCT USED FOR UNKNOWN INDICATION
     Dosage: UNK
     Dates: start: 20010601, end: 20080301
  2. LORTAB [Concomitant]
  3. YASMIN [Suspect]
     Indication: PRODUCT USED FOR UNKNOWN INDICATION

REACTIONS (2)
  - GALLBLADDER INJURY [None]
  - PANCREATITIS [None]
